FAERS Safety Report 4711972-X (Version None)
Quarter: 2005Q2

REPORT INFORMATION
  Report Type: 
  Country: None (occurrence: None)
  Receive Date: 20050629
  Receipt Date: 20050425
  Transmission Date: 20051028
  Serious: No
  Sender: FDA-Public Use
  Company Number: 05P-163-0298324-00

PATIENT
  Age: 53 Year
  Sex: Female
  Weight: 71.6683 kg

DRUGS (7)
  1. HUMIRA [Suspect]
     Indication: RHEUMATOID ARTHRITIS
     Dosage: 40 MG, 1 IN 2 WK, SUBCUTANEOUS
     Route: 058
     Dates: start: 20050408
  2. MELOXICAM [Concomitant]
  3. CARVEDILOL [Concomitant]
  4. VERAPAMIL [Concomitant]
  5. CLOTRIMAZOLE [Concomitant]
  6. METFORMIN [Concomitant]
  7. ITRACONAZOLE [Concomitant]

REACTIONS (2)
  - INJECTION SITE IRRITATION [None]
  - INJECTION SITE NODULE [None]
